FAERS Safety Report 5529874-8 (Version None)
Quarter: 2007Q4

REPORT INFORMATION
  Report Type: 
  Country: None (occurrence: None)
  Receive Date: 20071129
  Receipt Date: 20070416
  Transmission Date: 20080405
  Serious: No
  Sender: FDA-Public Use
  Company Number: US-ABBOTT-07P-163-0365713-00

PATIENT
  Sex: Female
  Weight: 86.26 kg

DRUGS (2)
  1. MERIDIA [Suspect]
     Indication: WEIGHT CONTROL
     Route: 048
     Dates: start: 20070328
  2. NICOTINE [Concomitant]
     Indication: EX-SMOKER
     Route: 062
     Dates: start: 20061101

REACTIONS (4)
  - DRY SKIN [None]
  - ERYTHEMA [None]
  - RASH [None]
  - SKIN EXFOLIATION [None]
